FAERS Safety Report 7936258-1 (Version None)
Quarter: 2011Q4

REPORT INFORMATION
  Report Type: 
  Country: None (occurrence: None)
  Receive Date: 20111123
  Receipt Date: 20111118
  Transmission Date: 20120403
  Serious: Yes (Hospitalization)
  Sender: FDA-Public Use
  Company Number: US-BAYER-2011-028515

PATIENT
  Age: 22 Year
  Sex: Female
  Weight: 58.957 kg

DRUGS (8)
  1. YASMIN [Suspect]
     Dosage: UNK
     Dates: start: 20060501, end: 20060901
  2. CLINDEX [Concomitant]
  3. YASMIN [Suspect]
     Dosage: UNK
     Dates: start: 20030101, end: 20080101
  4. ZEPHREX LA [Concomitant]
     Dosage: UNK UNK, BID
  5. NEXIUM [Concomitant]
     Indication: ABDOMINAL PAIN UPPER
     Dosage: UNK
     Dates: start: 20080201
  6. AMOXICILLIN [Concomitant]
     Dosage: UNK UNK, TID
  7. YASMIN [Suspect]
     Indication: CONTRACEPTION
     Dosage: UNK
     Dates: start: 20050101, end: 20100101
  8. YAZ [Suspect]
     Indication: CONTRACEPTION
     Dosage: UNK
     Dates: start: 20071001, end: 20080901

REACTIONS (3)
  - CHOLECYSTITIS CHRONIC [None]
  - PAIN [None]
  - GALLBLADDER DISORDER [None]
